FAERS Safety Report 20624544 (Version 1)
Quarter: 2022Q1

REPORT INFORMATION
  Report Type: Spontaneous
  Country: CN (occurrence: CN)
  Receive Date: 20220322
  Receipt Date: 20220322
  Transmission Date: 20220423
  Serious: Yes (Other)
  Sender: FDA-Public Use
  Company Number: CN-BAXTER-2022BAX006144

PATIENT
  Age: 40 Year
  Sex: Female
  Weight: 45 kg

DRUGS (12)
  1. CYCLOPHOSPHAMIDE [Suspect]
     Active Substance: CYCLOPHOSPHAMIDE
     Indication: Breast cancer female
     Dosage: 1-3 CYCLE OF CHEMOTHERAPY, CYCLOPHOSPHAMIDE + NS
     Route: 042
  2. CYCLOPHOSPHAMIDE [Suspect]
     Active Substance: CYCLOPHOSPHAMIDE
     Dosage: 4TH CYCLE OF CHEMOTHERAPY, CYCLOPHOSPHAMIDE 880 MG + NS 45ML
     Route: 042
     Dates: start: 20220208, end: 20220208
  3. CYCLOPHOSPHAMIDE [Suspect]
     Active Substance: CYCLOPHOSPHAMIDE
     Dosage: DOSE REINTRODUCED, CYCLOPHOSPHAMIDE + NS
     Route: 042
  4. SODIUM CHLORIDE [Suspect]
     Active Substance: SODIUM CHLORIDE
     Indication: Medication dilution
     Dosage: 1-3 CYCLE OF CHEMOTHERAPY; CYCLOPHOSPHAMIDE + NS
     Route: 042
  5. SODIUM CHLORIDE [Suspect]
     Active Substance: SODIUM CHLORIDE
     Dosage: 1-3 CYCLE OF CHEMOTHERAPY, DOCETAXEL + NS
     Route: 041
  6. SODIUM CHLORIDE [Suspect]
     Active Substance: SODIUM CHLORIDE
     Dosage: 4TH CYCLE OF CHEMOTHERAPY, CYCLOPHOSPHAMIDE 880 MG + NS 45ML
     Route: 042
     Dates: start: 20220208, end: 20220208
  7. SODIUM CHLORIDE [Suspect]
     Active Substance: SODIUM CHLORIDE
     Dosage: 4TH CYCLE OF CHEMOTHERAPY; DOCETAXEL 110 MG + NS 250ML
     Route: 041
     Dates: start: 20220208, end: 20220208
  8. SODIUM CHLORIDE [Suspect]
     Active Substance: SODIUM CHLORIDE
     Dosage: DOSE REINTRODUCED, CYCLOPHOSPHAMIDE + NS
     Route: 042
  9. SODIUM CHLORIDE [Suspect]
     Active Substance: SODIUM CHLORIDE
     Dosage: DOSE REINTRODUCED, DOCETAXEL + NS
     Route: 041
  10. TAXOTERE [Suspect]
     Active Substance: DOCETAXEL
     Indication: Breast cancer female
     Dosage: 1-3 CYCLE OF CHEMOTHERAPY, DOCETAXEL + NS
     Route: 041
  11. TAXOTERE [Suspect]
     Active Substance: DOCETAXEL
     Dosage: 4TH CYCLE OF CHEMOTHERAPY, DOCETAXEL 110 MG + NS 250ML
     Route: 041
     Dates: start: 20220208, end: 20220208
  12. TAXOTERE [Suspect]
     Active Substance: DOCETAXEL
     Dosage: DOSE REINTRODUCED, DOCETAXEL + NS
     Route: 041

REACTIONS (2)
  - White blood cell count decreased [Recovered/Resolved]
  - Agranulocytosis [Recovered/Resolved]

NARRATIVE: CASE EVENT DATE: 20220214
